FAERS Safety Report 10995548 (Version 3)
Quarter: 2016Q3

REPORT INFORMATION
  Report Type: Report from Study
  Country: JP (occurrence: JP)
  Receive Date: 20150407
  Receipt Date: 20160721
  Transmission Date: 20161109
  Serious: Yes (Hospitalization)
  Sender: FDA-Public Use
  Company Number: JP-ASTRAZENECA-2015SE31392

PATIENT
  Age: 26977 Day
  Sex: Male
  Weight: 57 kg

DRUGS (16)
  1. BLOPRESS [Concomitant]
     Active Substance: CANDESARTAN CILEXETIL
  2. ARTIST [Concomitant]
     Active Substance: CARVEDILOL
  3. INSULIN [Suspect]
     Active Substance: INSULIN NOS
     Indication: TYPE 2 DIABETES MELLITUS
     Route: 065
     Dates: start: 20150531
  4. NORVASC [Concomitant]
     Active Substance: AMLODIPINE BESYLATE
  5. CRESTOR [Concomitant]
     Active Substance: ROSUVASTATIN CALCIUM
  6. PLACEBO [Suspect]
     Active Substance: UNSPECIFIED INGREDIENT
     Indication: TYPE 2 DIABETES MELLITUS
     Dosage: BEFORE BREAKFAST FOR 16 WEEKS
     Route: 048
     Dates: start: 20140521
  7. NOVORAPID [Concomitant]
     Active Substance: INSULIN ASPART
  8. SELBEX [Concomitant]
     Active Substance: TEPRENONE
  9. PRORANON [Concomitant]
  10. ONGLYZA [Suspect]
     Active Substance: SAXAGLIPTIN HYDROCHLORIDE
     Indication: TYPE 2 DIABETES MELLITUS
     Route: 048
     Dates: start: 20140913, end: 20150326
  11. ITOROL [Concomitant]
     Active Substance: ISOSORBIDE MONONITRATE
  12. BAYASPIRIN [Concomitant]
     Active Substance: ASPIRIN
  13. INSULIN [Suspect]
     Active Substance: INSULIN NOS
     Indication: TYPE 2 DIABETES MELLITUS
     Route: 065
  14. FLUITRAN [Concomitant]
     Active Substance: TRICHLORMETHIAZIDE
  15. ZANTAC [Concomitant]
     Active Substance: RANITIDINE HYDROCHLORIDE
  16. UNISIA [Concomitant]
     Active Substance: AMLODIPINE BESYLATE\CANDESARTAN CILEXETIL

REACTIONS (1)
  - Gastric cancer [Recovered/Resolved]

NARRATIVE: CASE EVENT DATE: 20150308
